FAERS Safety Report 20023353 (Version 15)
Quarter: 2022Q2

REPORT INFORMATION
  Report Type: Spontaneous
  Country: PL (occurrence: PL)
  Receive Date: 20211102
  Receipt Date: 20220519
  Transmission Date: 20220720
  Serious: Yes (Hospitalization, Other)
  Sender: FDA-Public Use
  Company Number: PL-Gedeon Richter Plc.-2021_GR_007901

PATIENT
  Age: 31 Year
  Sex: Male

DRUGS (36)
  1. ALPRAZOLAM [Interacting]
     Active Substance: ALPRAZOLAM
     Indication: Insomnia
     Dosage: 1 MILLIGRAM, ONCE A DAY (1 MG AT BEDTIME)(PER NIGHT)
     Route: 048
  2. ALPRAZOLAM [Interacting]
     Active Substance: ALPRAZOLAM
     Indication: Anxiety
  3. ALPRAZOLAM [Interacting]
     Active Substance: ALPRAZOLAM
     Indication: Affective disorder
  4. AMLODIPINE [Interacting]
     Active Substance: AMLODIPINE BESYLATE
     Indication: Hypertension
     Dosage: 10 MILLIGRAM
     Route: 065
  5. AMOXICILLIN\CLAVULANIC ACID [Interacting]
     Active Substance: AMOXICILLIN\CLAVULANIC ACID
     Indication: Cough
     Dosage: 1000 MILLIGRAM, TWO TIMES A DAY
     Route: 065
  6. AMOXICILLIN\CLAVULANIC ACID [Interacting]
     Active Substance: AMOXICILLIN\CLAVULANIC ACID
     Dosage: 200 MILLIGRAM, ONCE A DAY (100 MG, BID)
     Route: 065
  7. AMOXICILLIN\CLAVULANIC ACID [Interacting]
     Active Substance: AMOXICILLIN\CLAVULANIC ACID
     Dosage: 2000 MILLIGRAM, ONCE A DAY
     Route: 065
  8. ATORVASTATIN [Suspect]
     Active Substance: ATORVASTATIN
     Indication: Dyslipidaemia
     Dosage: 40 MILLIGRAM, ONCE A DAY
     Route: 048
  9. ESCITALOPRAM [Interacting]
     Active Substance: ESCITALOPRAM OXALATE
     Indication: Depression
     Dosage: 10 MILLIGRAM, ONCE A DAY
     Route: 065
  10. ESCITALOPRAM [Interacting]
     Active Substance: ESCITALOPRAM OXALATE
     Dosage: 1.0 MILLIGRAM
     Route: 065
  11. PERINDOPRIL [Interacting]
     Active Substance: PERINDOPRIL
     Indication: Hypertension
     Dosage: 10 MILLIGRAM
     Route: 065
  12. SERTRALINE [Suspect]
     Active Substance: SERTRALINE HYDROCHLORIDE
     Indication: Insomnia
     Dosage: 50 MILLIGRAM, ONCE A DAY (50 MG IN THE MORNING)
     Route: 048
  13. SERTRALINE [Suspect]
     Active Substance: SERTRALINE HYDROCHLORIDE
     Indication: Affective disorder
  14. SERTRALINE [Suspect]
     Active Substance: SERTRALINE HYDROCHLORIDE
     Indication: Anxiety
  15. SERTRALINE [Suspect]
     Active Substance: SERTRALINE HYDROCHLORIDE
     Indication: Depression
  16. TADALAFIL [Suspect]
     Active Substance: TADALAFIL
     Indication: Erectile dysfunction
     Dosage: 10 MILLIGRAM, AS NECESSARY
     Route: 065
  17. AMLODIPINE\PERINDOPRIL [Interacting]
     Active Substance: AMLODIPINE\PERINDOPRIL
     Indication: Hypertension
     Dosage: 1 DOSAGE FORM (10MG +10 MG)
     Route: 065
  18. AMLODIPINE\PERINDOPRIL [Interacting]
     Active Substance: AMLODIPINE\PERINDOPRIL
     Indication: Affective disorder
     Dosage: 10 MILLIGRAM, ONCE A DAY
     Route: 065
  19. AMLODIPINE\PERINDOPRIL [Interacting]
     Active Substance: AMLODIPINE\PERINDOPRIL
     Indication: Insomnia
  20. CLARITHROMYCIN [Interacting]
     Active Substance: CLARITHROMYCIN
     Indication: Cough
     Dosage: 1000 MILLIGRAM, ONCE A DAY ((2 X 500 MG)
     Route: 048
  21. CLARITHROMYCIN [Interacting]
     Active Substance: CLARITHROMYCIN
     Dosage: 500 MILLIGRAM, TWO TIMES A DAY (500 MG, BID)
     Route: 048
  22. CLARITHROMYCIN [Interacting]
     Active Substance: CLARITHROMYCIN
     Dosage: 1 GRAM, ONCE A DAY
     Route: 065
  23. CODEINE PHOSPHATE\SULFOGAIACOL [Interacting]
     Active Substance: CODEINE PHOSPHATE\SULFOGAIACOL
     Indication: Cough
     Dosage: 3 DOSAGE FORM, 3 TIMES A DAY (3 X 1 TABLET; 1 DF = 1 TABLET)
     Route: 065
  24. DICLOFENAC [Suspect]
     Active Substance: DICLOFENAC
     Indication: Back pain
     Dosage: 150 MILLIGRAM, ONCE A DAY(150 MG/DAY )
     Route: 065
  25. DEXTROMETHORPHAN [Interacting]
     Active Substance: DEXTROMETHORPHAN
     Indication: Antitussive therapy
     Dosage: 30 MILLIGRAM, 3 TIMES A DAY
     Route: 065
  26. DEXTROMETHORPHAN [Interacting]
     Active Substance: DEXTROMETHORPHAN
     Indication: Cough
     Dosage: 90 MILLIGRAM, ONCE A DAY
     Route: 065
  27. LEVODROPROPIZINE [Suspect]
     Active Substance: LEVODROPROPIZINE
     Indication: Antitussive therapy
     Dosage: UNK
     Route: 065
  28. METHYLPREDNISOLONE [Interacting]
     Active Substance: METHYLPREDNISOLONE
     Indication: Product used for unknown indication
     Dosage: 8 MILLIGRAM, TWO TIMES A DAY
     Route: 065
  29. METHYLPREDNISOLONE [Interacting]
     Active Substance: METHYLPREDNISOLONE
     Dosage: 16 MILLIGRAM, ONCE A DAY
     Route: 065
  30. OMEPRAZOLE [Interacting]
     Active Substance: OMEPRAZOLE
     Indication: Product used for unknown indication
     Dosage: 20 MILLIGRAM, TWO TIMES A DAY
     Route: 065
  31. OMEPRAZOLE [Interacting]
     Active Substance: OMEPRAZOLE
     Dosage: 40 MILLIGRAM, ONCE A DAY
     Route: 065
  32. RAMIPRIL [Interacting]
     Active Substance: RAMIPRIL
     Indication: Hypertension
     Dosage: 10 MILLIGRAM, ONCE A DAY
     Route: 048
  33. ACETAMINOPHEN\TRAMADOL [Suspect]
     Active Substance: ACETAMINOPHEN\TRAMADOL
     Indication: Back pain
     Dosage: 1 DOSAGE FORM, TWO TIMES A DAY(AT A DOSE OF 37.5 / 325 MG TWICE A DAY)
     Route: 065
  34. ACETAMINOPHEN\TRAMADOL [Suspect]
     Active Substance: ACETAMINOPHEN\TRAMADOL
     Indication: Sacral pain
  35. VALSARTAN [Suspect]
     Active Substance: VALSARTAN
     Indication: Hypertension
     Dosage: UNK
     Route: 065
  36. VORTIOXETINE [Suspect]
     Active Substance: VORTIOXETINE
     Indication: Depression
     Dosage: UNK
     Route: 065

REACTIONS (33)
  - Cough [Recovered/Resolved]
  - Erectile dysfunction [Recovered/Resolved]
  - Drug interaction [Recovered/Resolved]
  - Hyperhidrosis [Recovered/Resolved]
  - Constipation [Unknown]
  - Joint swelling [Recovered/Resolved]
  - Poor quality sleep [Unknown]
  - Irritability [Unknown]
  - Serotonin syndrome [Recovered/Resolved]
  - Sleep disorder [Unknown]
  - Labelled drug-drug interaction medication error [Recovered/Resolved]
  - Condition aggravated [Recovered/Resolved]
  - General physical health deterioration [Unknown]
  - Drug-disease interaction [Recovered/Resolved]
  - Tachycardia [Recovered/Resolved]
  - Blood pressure increased [Recovered/Resolved]
  - Tachypnoea [Recovering/Resolving]
  - Hyperaesthesia [Recovered/Resolved]
  - Anorgasmia [Recovered/Resolved]
  - Back pain [Recovered/Resolved]
  - Drug level increased [Unknown]
  - Pain [Unknown]
  - Oedema peripheral [Unknown]
  - Insomnia [Recovering/Resolving]
  - Contraindicated product administered [Unknown]
  - Sacral pain [Recovered/Resolved]
  - Depression [Unknown]
  - Affective disorder [Recovering/Resolving]
  - Ill-defined disorder [Unknown]
  - Neuralgia [Recovered/Resolved]
  - Drug ineffective [Unknown]
  - Product use in unapproved indication [Unknown]
  - Off label use [Recovered/Resolved]
